FAERS Safety Report 11633788 (Version 1)
Quarter: 2015Q4

REPORT INFORMATION
  Report Type: Spontaneous
  Country: US (occurrence: US)
  Receive Date: 20151015
  Receipt Date: 20151015
  Transmission Date: 20160304
  Serious: Yes (Hospitalization)
  Sender: FDA-Public Use
  Company Number: US-INDIANA BOTANIC GARDENS, INC.-1042999

PATIENT
  Age: 84 Year
  Sex: Female
  Weight: 73.64 kg

DRUGS (17)
  1. OXYBUTYNIN CHLORIDE. [Concomitant]
     Active Substance: OXYBUTYNIN CHLORIDE
  2. POTASSIUM (DIETARY SUPPLEMENT) [Concomitant]
  3. VITAMIN D3 (DIETARY SUPPLEMENT) [Concomitant]
  4. RANITIDINE [Concomitant]
     Active Substance: RANITIDINE\RANITIDINE HYDROCHLORIDE
  5. LASIX [Concomitant]
     Active Substance: FUROSEMIDE
  6. WARFARIN SODIUM. [Concomitant]
     Active Substance: WARFARIN SODIUM
  7. ATENOLOL. [Concomitant]
     Active Substance: ATENOLOL
  8. RED YEAST RICE (DIETARY SUPPLEMENT) [Concomitant]
  9. FISH OIL (DIETARY SUPPLEMENT) [Concomitant]
  10. SUPER B COMPLEX (DIETARY SUPPLEMENT) [Concomitant]
  11. CLEAR EAR COMPLEX (DIETARY SUPPLEMENT) CAPSULE [Suspect]
     Active Substance: DIETARY SUPPLEMENT
  12. BIOTIN (DIETARY SUPPLEMENT) [Concomitant]
  13. PLAVIX [Concomitant]
     Active Substance: CLOPIDOGREL BISULFATE
  14. OCUVITE 50 (DIETARY SUPPLEMENT) [Concomitant]
  15. CINNAMON (DIETARY SUPPLEMENT) [Concomitant]
  16. MAGNESIUM (DIETARY SUPPLEMENT) [Concomitant]
  17. MULTIVITAMIN (DIETARY SUPPLEMENT) [Concomitant]

REACTIONS (4)
  - Hypertension [None]
  - Amnesia [None]
  - Feeling abnormal [None]
  - Facial asymmetry [None]
